FAERS Safety Report 23089656 (Version 2)
Quarter: 2023Q4

REPORT INFORMATION
  Report Type: Spontaneous
  Country: JP (occurrence: JP)
  Receive Date: 20231020
  Receipt Date: 20231103
  Transmission Date: 20240110
  Serious: Yes (Other)
  Sender: FDA-Public Use
  Company Number: JP-CHUGAI-2023027426

PATIENT
  Age: 74 Year
  Sex: Female
  Weight: 38.2 kg

DRUGS (6)
  1. ACTEMRA [Suspect]
     Active Substance: TOCILIZUMAB
     Indication: Rheumatoid arthritis
     Dosage: 162 MILLIGRAM, ONCE/2WEEKS
     Route: 058
     Dates: start: 20190129, end: 20230612
  2. DENOSUMAB [Concomitant]
     Active Substance: DENOSUMAB
     Dosage: UNK
     Dates: start: 20180402
  3. TACROLIMUS [Concomitant]
     Active Substance: TACROLIMUS
     Dosage: 3 MILLIGRAM
     Dates: start: 20170508, end: 20230417
  4. TOPIROXOSTAT [Concomitant]
     Active Substance: TOPIROXOSTAT
     Dosage: UNK
     Dates: start: 20160119, end: 20230417
  5. ONEALFA [Concomitant]
     Active Substance: ALFACALCIDOL
     Dosage: 0.5 MICROGRAM
     Dates: start: 20171002
  6. REBAMIPIDE [Concomitant]
     Active Substance: REBAMIPIDE
     Dosage: UNK

REACTIONS (3)
  - Erythema multiforme [Recovered/Resolved]
  - Dermatitis exfoliative generalised [Recovered/Resolved]
  - Injection site pruritus [Recovered/Resolved]

NARRATIVE: CASE EVENT DATE: 20221220
